FAERS Safety Report 24846267 (Version 2)
Quarter: 2025Q1

REPORT INFORMATION
  Report Type: Spontaneous
  Country: US (occurrence: US)
  Receive Date: 20250115
  Receipt Date: 20250127
  Transmission Date: 20250409
  Serious: Yes (Life-Threatening, Hospitalization)
  Sender: TEVA
  Company Number: US-TEVA-VS-3284534

PATIENT
  Age: 19 Year
  Sex: Female

DRUGS (1)
  1. WARFARIN [Suspect]
     Active Substance: WARFARIN
     Indication: Product used for unknown indication
     Route: 065

REACTIONS (2)
  - Gastrointestinal haemorrhage [Recovered/Resolved]
  - Shock haemorrhagic [Recovered/Resolved]
